FAERS Safety Report 16328541 (Version 4)
Quarter: 2019Q2

REPORT INFORMATION
  Report Type: Spontaneous
  Country: HU (occurrence: HU)
  Receive Date: 20190518
  Receipt Date: 20190605
  Transmission Date: 20190711
  Serious: Yes (Hospitalization, Other)
  Sender: FDA-Public Use
  Company Number: PHHY2019HU109889

PATIENT
  Age: 44 Year
  Sex: Male

DRUGS (2)
  1. CICLOSPORIN [Suspect]
     Active Substance: CYCLOSPORINE
     Indication: IRIDOCYCLITIS
     Route: 062
  2. AZATHIOPRINE. [Suspect]
     Active Substance: AZATHIOPRINE
     Indication: BEHCET^S SYNDROME
     Dosage: UNK
     Route: 065
     Dates: start: 2016

REACTIONS (10)
  - Arthralgia [Recovered/Resolved]
  - Mouth ulceration [Recovered/Resolved]
  - Blindness unilateral [Recovered/Resolved]
  - Deep vein thrombosis [Recovered/Resolved]
  - Uveitis [Recovered/Resolved]
  - Product use in unapproved indication [Unknown]
  - Retinal haemorrhage [Recovered/Resolved]
  - Pyrexia [Recovered/Resolved]
  - Acne [Recovered/Resolved]
  - Behcet^s syndrome [Recovered/Resolved]

NARRATIVE: CASE EVENT DATE: 201603
